FAERS Safety Report 23465023 (Version 1)
Quarter: 2024Q1

REPORT INFORMATION
  Report Type: Report from Study
  Country: US (occurrence: None)
  Receive Date: 20240201
  Receipt Date: 20240201
  Transmission Date: 20240410
  Serious: Yes (Other)
  Sender: FDA-Public Use
  Company Number: 2024A021208

PATIENT
  Sex: Female

DRUGS (1)
  1. LYNPARZA [Suspect]
     Active Substance: OLAPARIB
     Indication: Breast cancer female
     Route: 048
     Dates: start: 20231212

REACTIONS (7)
  - Pneumonia [Unknown]
  - Pneumonia bacterial [Unknown]
  - Product after taste [Unknown]
  - Red blood cell count decreased [Unknown]
  - White blood cell count decreased [Unknown]
  - Haematocrit decreased [Unknown]
  - Haemoglobin decreased [Unknown]
